FAERS Safety Report 6251600-8 (Version None)
Quarter: 2009Q2

REPORT INFORMATION
  Report Type: 
  Country: None (occurrence: None)
  Receive Date: 20090626
  Receipt Date: 20090626
  Transmission Date: 20091009
  Serious: Yes (Other)
  Sender: FDA-Public Use
  Company Number: None

PATIENT
  Age: 60 Year
  Sex: Female
  Weight: 56.246 kg

DRUGS (1)
  1. ZICAM GELS, SPRAYS AND SWABS  N/A [Suspect]
     Indication: NASOPHARYNGITIS
     Dosage: EVERY 4-6 HOURS NASAL; OVER A YEAR
     Route: 045

REACTIONS (9)
  - DYSPHAGIA [None]
  - DYSPNOEA [None]
  - EPISTAXIS [None]
  - HYPOSMIA [None]
  - INCREASED UPPER AIRWAY SECRETION [None]
  - INFECTION [None]
  - NASAL CONGESTION [None]
  - RHINORRHOEA [None]
  - SCAB [None]
